FAERS Safety Report 25661957 (Version 1)
Quarter: 2025Q3

REPORT INFORMATION
  Report Type: Spontaneous
  Country: IN (occurrence: IN)
  Receive Date: 20250809
  Receipt Date: 20250809
  Transmission Date: 20251021
  Serious: Yes (Hospitalization, Other)
  Sender: MACLEODS
  Company Number: IN-MACLEODS PHARMA-MAC2025054548

PATIENT

DRUGS (2)
  1. IBANDRONATE SODIUM [Suspect]
     Active Substance: IBANDRONATE SODIUM
     Indication: Thoracic vertebral fracture
     Route: 048
  2. IBANDRONATE SODIUM [Suspect]
     Active Substance: IBANDRONATE SODIUM
     Indication: Osteoporosis

REACTIONS (4)
  - Parophthalmia [Recovering/Resolving]
  - Exophthalmos [Recovering/Resolving]
  - Iridocyclitis [Recovering/Resolving]
  - Conjunctival oedema [Recovering/Resolving]
